FAERS Safety Report 24160774 (Version 2)
Quarter: 2024Q3

REPORT INFORMATION
  Report Type: Spontaneous
  Country: AU (occurrence: AU)
  Receive Date: 20240801
  Receipt Date: 20240928
  Transmission Date: 20241017
  Serious: Yes (Other)
  Sender: CELLTRION
  Company Number: AU-PFIZER INC-202400222401

PATIENT

DRUGS (3)
  1. INFLECTRA [Suspect]
     Active Substance: INFLIXIMAB-DYYB
     Indication: Uveitis
     Dosage: 400 MG, EVERY 8 WEEKS
     Dates: start: 20230507, end: 20240416
  2. PREDNISOLONE [Concomitant]
     Active Substance: PREDNISOLONE
     Dosage: UNK
     Dates: start: 20230507, end: 20240416
  3. PREDNEFRIN FORTE [PHENYLEPHRINE HYDROCHLORIDE;PREDNISOLONE ACETATE] [Concomitant]
     Dosage: UNK
     Route: 061
     Dates: start: 20230507, end: 20240416

REACTIONS (3)
  - Uveitis [Unknown]
  - Neutralising antibodies positive [Recovered/Resolved]
  - Off label use [Unknown]

NARRATIVE: CASE EVENT DATE: 20240415
